FAERS Safety Report 7812419-7 (Version None)
Quarter: 2011Q4

REPORT INFORMATION
  Report Type: 
  Country: None (occurrence: None)
  Receive Date: 20111013
  Receipt Date: 20111003
  Transmission Date: 20120403
  Serious: Yes (Death, Hospitalization)
  Sender: FDA-Public Use
  Company Number: NL-JNJFOC-20110408457

PATIENT
  Sex: Male
  Weight: 93 kg

DRUGS (15)
  1. RED BLOOD CELL TRANSFUSION [Concomitant]
     Indication: ANAEMIA
     Dosage: ONCE ONLY
     Route: 042
     Dates: start: 20110401, end: 20110401
  2. PREDNISOLONE [Suspect]
     Route: 048
     Dates: start: 20101029
  3. MICROLAX [Concomitant]
     Indication: CONSTIPATION
     Route: 054
     Dates: start: 20100304
  4. MS CONTIN [Concomitant]
     Indication: CANCER PAIN
     Route: 048
     Dates: start: 20110311, end: 20110331
  5. ABIRATERONE ACETATE [Suspect]
     Indication: PROSTATE CANCER METASTATIC
     Route: 048
     Dates: start: 20101029, end: 20110508
  6. ABIRATERONE ACETATE [Suspect]
     Route: 048
  7. ZOMETA [Concomitant]
     Indication: METASTASES TO BONE
     Route: 042
     Dates: start: 20080101
  8. PARACETAMOL [Concomitant]
     Indication: CANCER PAIN
     Route: 048
     Dates: start: 20090721
  9. PREDNISOLONE [Suspect]
     Indication: PROSTATE CANCER METASTATIC
     Route: 048
  10. FUROSEMIDE [Concomitant]
     Route: 048
     Dates: start: 20100401, end: 20100901
  11. GOSERELIN [Concomitant]
     Indication: HORMONE THERAPY
     Route: 058
     Dates: start: 20090108
  12. GOSERELIN [Concomitant]
     Route: 058
     Dates: start: 20020501
  13. FUROSEMIDE [Concomitant]
     Indication: OEDEMA
     Route: 048
     Dates: start: 20100901
  14. EPREX [Concomitant]
     Indication: HAEMOGLOBIN DECREASED
     Route: 058
     Dates: start: 20101229
  15. OXYCODONE HCL [Concomitant]
     Indication: CANCER PAIN
     Route: 048
     Dates: start: 20110210

REACTIONS (2)
  - RENAL FAILURE [None]
  - BLOOD CREATININE INCREASED [None]
